FAERS Safety Report 20217501 (Version 1)
Quarter: 2021Q4

REPORT INFORMATION
  Report Type: Report from Study
  Country: CA (occurrence: CA)
  Receive Date: 20211222
  Receipt Date: 20211222
  Transmission Date: 20220303
  Serious: Yes (Other)
  Sender: FDA-Public Use
  Company Number: CA-JNJFOC-20211143772

PATIENT
  Age: 52 Year
  Sex: Female

DRUGS (1)
  1. SIMPONI [Suspect]
     Active Substance: GOLIMUMAB
     Indication: Colitis ulcerative
     Dosage: TOOK LAST INJECTION ON 10-NOV-2021
     Route: 058
     Dates: start: 20141028

REACTIONS (2)
  - Colitis ulcerative [Unknown]
  - COVID-19 [Recovering/Resolving]
